FAERS Safety Report 20210108 (Version 1)
Quarter: 2021Q4

REPORT INFORMATION
  Report Type: Spontaneous
  Country: JP (occurrence: JP)
  Receive Date: 20211221
  Receipt Date: 20211221
  Transmission Date: 20220303
  Serious: Yes (Hospitalization, Other)
  Sender: FDA-Public Use
  Company Number: JP-JNJFOC-20211159220

PATIENT
  Age: 59 Year
  Sex: Male
  Weight: 89.1 kg

DRUGS (8)
  1. PALIPERIDONE PALMITATE [Suspect]
     Active Substance: PALIPERIDONE PALMITATE
     Indication: Product used for unknown indication
     Route: 030
     Dates: end: 20211118
  2. PALIPERIDONE PALMITATE [Suspect]
     Active Substance: PALIPERIDONE PALMITATE
  3. PALIPERIDONE PALMITATE [Suspect]
     Active Substance: PALIPERIDONE PALMITATE
  4. RISPERDAL [Suspect]
     Active Substance: RISPERIDONE
     Indication: Product used for unknown indication
     Dosage: IN THE AFTERNOON AND EVENING, AT BEDTIME
     Route: 048
  5. DEPAS [Concomitant]
     Dosage: DOSE UNKNOWN
     Route: 048
  6. LATUDA [Concomitant]
     Active Substance: LURASIDONE HYDROCHLORIDE
     Route: 048
  7. AKINETON [Concomitant]
     Active Substance: BIPERIDEN HYDROCHLORIDE
     Dosage: IN THE AFTERNOON AND EVENING, AT BEDTIME
     Route: 048
  8. FLUNITRAZEPAM [Concomitant]
     Active Substance: FLUNITRAZEPAM
     Dosage: AT BEDTIME
     Route: 048

REACTIONS (5)
  - Rhabdomyolysis [Unknown]
  - Acute kidney injury [Unknown]
  - Acute hepatic failure [Unknown]
  - Inappropriate schedule of product administration [Unknown]
  - Off label use [Unknown]
